FAERS Safety Report 14837967 (Version 1)
Quarter: 2018Q2

REPORT INFORMATION
  Report Type: Spontaneous
  Country: US (occurrence: US)
  Receive Date: 20180502
  Receipt Date: 20180502
  Transmission Date: 20180711
  Serious: Yes (Other)
  Sender: FDA-Public Use
  Company Number: US-TEVA-2018-US-887678

PATIENT
  Age: 17 Year
  Sex: Female

DRUGS (4)
  1. DOXORUBICIN [Concomitant]
     Active Substance: DOXORUBICIN
     Indication: OSTEOSARCOMA
     Route: 065
  2. METHOTREXATE. [Suspect]
     Active Substance: METHOTREXATE
     Indication: OSTEOSARCOMA
     Dosage: 12 G/M2 OVER 4 HOURS
     Route: 041
  3. CARBOXYPEPTIDASE G2 [Suspect]
     Active Substance: GLUCARPIDASE
     Indication: TOXICITY TO VARIOUS AGENTS
     Route: 065
  4. CISPLATIN. [Concomitant]
     Active Substance: CISPLATIN
     Indication: OSTEOSARCOMA
     Route: 065

REACTIONS (3)
  - Acute kidney injury [Recovered/Resolved]
  - Laboratory test interference [Unknown]
  - Toxicity to various agents [Unknown]
